FAERS Safety Report 12716205 (Version 1)
Quarter: 2016Q3

REPORT INFORMATION
  Report Type: Spontaneous
  Country: VE (occurrence: VE)
  Receive Date: 20160906
  Receipt Date: 20160906
  Transmission Date: 20161109
  Serious: Yes (Hospitalization, Other)
  Sender: FDA-Public Use
  Company Number: PHHY2016VE122026

PATIENT
  Sex: Female

DRUGS (4)
  1. EUTIROX [Concomitant]
     Active Substance: LEVOTHYROXINE SODIUM
     Indication: ANXIETY
     Dosage: 250 MG, QD
     Route: 065
  2. TRILEPTAL [Suspect]
     Active Substance: OXCARBAZEPINE
     Indication: SEIZURE
     Dosage: 20 CM3, BID (IN THE MORNING AND IN THE AFTERNOON)
     Route: 048
  3. TRILEPTAL [Suspect]
     Active Substance: OXCARBAZEPINE
     Indication: CEREBRAL DISORDER
  4. VALPRON [Concomitant]
     Indication: SEIZURE
     Route: 065

REACTIONS (5)
  - Product use issue [Unknown]
  - Deafness [Recovering/Resolving]
  - Speech disorder [Recovering/Resolving]
  - Blindness [Recovering/Resolving]
  - Seizure [Recovering/Resolving]
